FAERS Safety Report 18364389 (Version 1)
Quarter: 2020Q4

REPORT INFORMATION
  Report Type: Spontaneous
  Country: GB (occurrence: GB)
  Receive Date: 20201009
  Receipt Date: 20201009
  Transmission Date: 20210114
  Serious: No
  Sender: FDA-Public Use
  Company Number: GB-ALKEM LABORATORIES LIMITED-GB-ALKEM-2020-04791

PATIENT
  Age: 40 Year
  Sex: Male

DRUGS (6)
  1. EZETIMIBE. [Suspect]
     Active Substance: EZETIMIBE
     Indication: PRODUCT USED FOR UNKNOWN INDICATION
     Dosage: UNK
     Route: 065
     Dates: start: 201910
  2. EZETIMIBE. [Suspect]
     Active Substance: EZETIMIBE
     Dosage: UNK
     Route: 065
     Dates: start: 202002
  3. EZETIMIBE. [Suspect]
     Active Substance: EZETIMIBE
     Dosage: UNK
     Route: 065
     Dates: start: 202007
  4. EZETIMIBE. [Suspect]
     Active Substance: EZETIMIBE
     Dosage: UNK
     Route: 065
     Dates: start: 202001
  5. EZETIMIBE. [Suspect]
     Active Substance: EZETIMIBE
     Dosage: UNK
     Route: 065
     Dates: start: 201911
  6. EZETIMIBE. [Suspect]
     Active Substance: EZETIMIBE
     Dosage: UNK
     Route: 065
     Dates: start: 201912

REACTIONS (1)
  - Low density lipoprotein increased [Unknown]
